FAERS Safety Report 11116321 (Version 25)
Quarter: 2018Q3

REPORT INFORMATION
  Report Type: Report from Study
  Country: AT (occurrence: AT)
  Receive Date: 20150515
  Receipt Date: 20180927
  Transmission Date: 20181010
  Serious: Yes (Death, Hospitalization, Other)
  Sender: FDA-Public Use
  Company Number: AT-INCYTE CORPORATION-2015IN001195

PATIENT

DRUGS (72)
  1. JAKAVI [Suspect]
     Active Substance: RUXOLITINIB
     Indication: MYELOFIBROSIS
     Dosage: 10 MG, QD
     Route: 065
  2. JAKAVI [Suspect]
     Active Substance: RUXOLITINIB
     Dosage: 5 MG, BID
     Route: 065
  3. JAKAVI [Suspect]
     Active Substance: RUXOLITINIB
     Dosage: 10 MG, UNK
     Route: 065
     Dates: start: 20130828, end: 20140504
  4. CLINDAMYCIN. [Concomitant]
     Active Substance: CLINDAMYCIN
     Indication: PRODUCT USED FOR UNKNOWN INDICATION
     Dosage: UNK
     Route: 065
     Dates: start: 20051104, end: 20151110
  5. EFFECTIN                           /00533902/ [Concomitant]
     Active Substance: BITOLTEROL MESYLATE
     Indication: PRODUCT USED FOR UNKNOWN INDICATION
     Dosage: UNK
     Route: 065
     Dates: start: 20090505
  6. EUTHYROX [Concomitant]
     Active Substance: LEVOTHYROXINE SODIUM
     Indication: PRODUCT USED FOR UNKNOWN INDICATION
     Dosage: 1.25 DF, QD (1 ? ?0 ?0)
     Route: 065
  7. EUTHYROX [Concomitant]
     Active Substance: LEVOTHYROXINE SODIUM
     Dosage: UNK
     Route: 065
     Dates: start: 20000517
  8. NOMEXOR [Concomitant]
     Active Substance: NEBIVOLOL HYDROCHLORIDE
     Indication: PRODUCT USED FOR UNKNOWN INDICATION
     Dosage: 5 MG, BID (1?0?1)
     Route: 065
     Dates: start: 20090424
  9. TEBOFORTAN [Concomitant]
     Active Substance: GINKGO
     Indication: PRODUCT USED FOR UNKNOWN INDICATION
     Dosage: 1 DF, QD (0?1?0)
     Route: 065
  10. SPIRIVA [Concomitant]
     Active Substance: TIOTROPIUM BROMIDE MONOHYDRATE
     Indication: PRODUCT USED FOR UNKNOWN INDICATION
     Dosage: 18 UG, QD (1?0?0)
     Route: 065
  11. TRITTICO [Concomitant]
     Active Substance: TRAZODONE HYDROCHLORIDE
     Dosage: UNK
     Route: 065
  12. PANTOPRAZOL [Concomitant]
     Active Substance: PANTOPRAZOLE SODIUM
     Indication: PRODUCT USED FOR UNKNOWN INDICATION
     Dosage: 20 MG, BID (1?0?1)
     Route: 065
  13. COLDISTOP [Concomitant]
     Indication: PRODUCT USED FOR UNKNOWN INDICATION
     Dosage: UNK UNK, TID
     Route: 045
  14. COLDISTOP [Concomitant]
     Dosage: OIL
     Route: 065
  15. OLEOVIT D3 [Concomitant]
     Active Substance: CHOLECALCIFEROL
     Indication: PRODUCT USED FOR UNKNOWN INDICATION
     Dosage: UNK
     Route: 065
     Dates: start: 20131217, end: 20140504
  16. PANTOPRAZOLE [Concomitant]
     Active Substance: PANTOPRAZOLE
     Indication: PRODUCT USED FOR UNKNOWN INDICATION
     Dosage: UNK
     Route: 065
     Dates: start: 20140505
  17. EXFORGE [Concomitant]
     Active Substance: AMLODIPINE BESYLATE\VALSARTAN
     Dosage: UNK
     Route: 065
  18. JAKAVI [Suspect]
     Active Substance: RUXOLITINIB
     Dosage: 5 MG, UNK
     Route: 065
     Dates: start: 20140505, end: 20140617
  19. SINTROM [Suspect]
     Active Substance: ACENOCOUMAROL
     Dosage: UNK
     Route: 065
     Dates: start: 200510
  20. SPIRIVA [Concomitant]
     Active Substance: TIOTROPIUM BROMIDE MONOHYDRATE
     Dosage: UNK
     Route: 065
     Dates: start: 20061218
  21. PANTOPRAZOL [Concomitant]
     Active Substance: PANTOPRAZOLE SODIUM
     Dosage: UNK
     Route: 065
  22. ELOMEL [Concomitant]
     Dosage: UNK
     Route: 065
  23. STERIMAR                           /01339701/ [Concomitant]
     Active Substance: SEA WATER
     Dosage: SPRAY
     Route: 065
  24. CYKLOKAPRON [Concomitant]
     Active Substance: TRANEXAMIC ACID
     Indication: PRODUCT USED FOR UNKNOWN INDICATION
     Dosage: UNK
     Route: 065
     Dates: start: 20150202
  25. NEUPRO [Concomitant]
     Active Substance: ROTIGOTINE
     Dosage: UNK
     Route: 065
  26. JAKAVI [Suspect]
     Active Substance: RUXOLITINIB
     Dosage: UNK
     Route: 065
     Dates: start: 20130218
  27. JAKAVI [Suspect]
     Active Substance: RUXOLITINIB
     Dosage: 5 MG, UNK
     Route: 065
     Dates: start: 20150302, end: 20150409
  28. DIGIMERCK [Concomitant]
     Active Substance: DIGITOXIN
     Dosage: UNK
  29. EFECTIN [Concomitant]
     Active Substance: VENLAFAXINE HYDROCHLORIDE
     Dosage: UNK
     Route: 065
  30. LASIX [Concomitant]
     Active Substance: FUROSEMIDE
     Dosage: UNK
     Route: 065
  31. VALSARCOMP [Concomitant]
     Active Substance: HYDROCHLOROTHIAZIDE\VALSARTAN
     Indication: PRODUCT USED FOR UNKNOWN INDICATION
     Dosage: 1 DF, QD (1?0?0)
     Route: 065
  32. VALSARCOMP [Concomitant]
     Active Substance: HYDROCHLOROTHIAZIDE\VALSARTAN
     Dosage: UNK
     Route: 065
     Dates: start: 20130410
  33. UROSIN                             /00003301/ [Concomitant]
     Dosage: UNK
     Route: 065
  34. STERIMAR                           /01339701/ [Concomitant]
     Active Substance: SEA WATER
     Indication: PRODUCT USED FOR UNKNOWN INDICATION
     Dosage: 5 OT, QD
     Route: 045
  35. PARKEMED [Concomitant]
     Active Substance: MEFENAMIC ACID
     Indication: PRODUCT USED FOR UNKNOWN INDICATION
     Dosage: 500 MG, TID
     Route: 005
  36. MOXONIDIN [Concomitant]
     Active Substance: MOXONIDINE
     Indication: PRODUCT USED FOR UNKNOWN INDICATION
     Dosage: UNK
     Route: 065
     Dates: start: 201302, end: 20150301
  37. JAKAVI [Suspect]
     Active Substance: RUXOLITINIB
     Dosage: 10 MG, UNK
     Route: 065
     Dates: start: 20130808, end: 20140504
  38. JAKAVI [Suspect]
     Active Substance: RUXOLITINIB
     Dosage: 5 MG, BID
     Route: 065
  39. TEBOFORTAN [Concomitant]
     Active Substance: GINKGO
     Dosage: UNK
     Route: 065
     Dates: start: 20071114
  40. VALSARCOMP [Concomitant]
     Active Substance: HYDROCHLOROTHIAZIDE\VALSARTAN
     Dosage: 160/25 MG
     Route: 065
  41. UROSIN                             /00003301/ [Concomitant]
     Indication: PRODUCT USED FOR UNKNOWN INDICATION
     Dosage: 300 MG, QD (0?0?1)
     Route: 065
  42. TRITTICO [Concomitant]
     Active Substance: TRAZODONE HYDROCHLORIDE
     Indication: PRODUCT USED FOR UNKNOWN INDICATION
     Dosage: 150 MG, QD(0?0?0?1)
     Route: 065
  43. NEUPRO [Concomitant]
     Active Substance: ROTIGOTINE
     Indication: PRODUCT USED FOR UNKNOWN INDICATION
     Dosage: UNK
     Route: 065
     Dates: start: 20130626
  44. JAKAVI [Suspect]
     Active Substance: RUXOLITINIB
     Dosage: 5 MG, UNK
     Route: 065
     Dates: start: 20150210, end: 20150301
  45. JAKAVI [Suspect]
     Active Substance: RUXOLITINIB
     Dosage: 5 MG, UNK
     Route: 065
     Dates: start: 20150302, end: 20150409
  46. JAKAVI [Suspect]
     Active Substance: RUXOLITINIB
     Dosage: UNK
     Route: 065
     Dates: start: 20150410
  47. SINTROM [Suspect]
     Active Substance: ACENOCOUMAROL
     Indication: ATRIAL FIBRILLATION
     Dosage: 0.5 DF,0.5 TABLET DAILY 6X/WEEK, 1 TABLET / WEEK (TUESDAYS)
     Route: 065
  48. DIGIMERCK [Concomitant]
     Active Substance: DIGITOXIN
     Indication: PRODUCT USED FOR UNKNOWN INDICATION
     Dosage: UNK
     Route: 065
     Dates: start: 20110112
  49. TEBOFORTAN [Concomitant]
     Active Substance: GINKGO
     Dosage: UNK
     Route: 065
  50. EFECTIN [Concomitant]
     Active Substance: VENLAFAXINE HYDROCHLORIDE
     Indication: PRODUCT USED FOR UNKNOWN INDICATION
     Dosage: 75 MG, QD (1?0?0)
     Route: 065
  51. LASIX [Concomitant]
     Active Substance: FUROSEMIDE
     Indication: PRODUCT USED FOR UNKNOWN INDICATION
     Dosage: 40 MG, BIW (2X WEEKLY 1?0?0)
     Route: 065
  52. UROSIN                             /00003301/ [Concomitant]
     Dosage: UNK
     Route: 065
     Dates: start: 20140505
  53. CYKLOKAPRON [Concomitant]
     Active Substance: TRANEXAMIC ACID
     Dosage: UNK
     Route: 065
  54. PARKEMED [Concomitant]
     Active Substance: MEFENAMIC ACID
     Dosage: UNK
     Route: 065
  55. EFFECTIN                           /00533902/ [Concomitant]
     Active Substance: BITOLTEROL MESYLATE
     Dosage: UNK
     Route: 065
  56. MIFLONIDE [Concomitant]
     Active Substance: BUDESONIDE
     Dosage: UNK
     Route: 065
     Dates: start: 20140701
  57. EXFORGE [Concomitant]
     Active Substance: AMLODIPINE BESYLATE\VALSARTAN
     Indication: PRODUCT USED FOR UNKNOWN INDICATION
     Dosage: UNK
     Route: 065
     Dates: start: 20150831
  58. JAKAVI [Suspect]
     Active Substance: RUXOLITINIB
     Dosage: 10 MG, QD (5 MG, BID)
     Route: 065
  59. NOMEXOR [Concomitant]
     Active Substance: NEBIVOLOL HYDROCHLORIDE
     Dosage: UNK
     Route: 065
  60. DAFLON                             /00426001/ [Concomitant]
     Active Substance: DIOSMIN
     Indication: PRODUCT USED FOR UNKNOWN INDICATION
     Dosage: 1 DF, BID (1?0?1)
     Route: 065
  61. ELOMEL [Concomitant]
     Indication: PRODUCT USED FOR UNKNOWN INDICATION
     Dosage: 1000 ML, BID (1X1)
     Route: 042
  62. MIFLONIDE [Concomitant]
     Active Substance: BUDESONIDE
     Indication: PRODUCT USED FOR UNKNOWN INDICATION
     Dosage: UNK
     Route: 065
     Dates: start: 200711, end: 20140225
  63. CIPROFLOXACIN. [Concomitant]
     Active Substance: CIPROFLOXACIN
     Indication: NASOPHARYNGITIS
     Dosage: UNK
     Route: 065
     Dates: start: 20150302, end: 20150308
  64. PROSPAN                            /01017805/ [Concomitant]
     Indication: COUGH
     Dosage: UNK
     Route: 065
     Dates: start: 20150831
  65. JAKAVI [Suspect]
     Active Substance: RUXOLITINIB
     Dosage: 5 MG, BID
     Route: 065
  66. JAKAVI [Suspect]
     Active Substance: RUXOLITINIB
     Dosage: 15 MG, UNK
     Route: 065
     Dates: start: 20130626, end: 20130827
  67. JAKAVI [Suspect]
     Active Substance: RUXOLITINIB
     Dosage: 10 MG, UNK
     Route: 065
     Dates: start: 20140618, end: 20150209
  68. EUTHYROX [Concomitant]
     Active Substance: LEVOTHYROXINE SODIUM
     Dosage: 100 ?G, UNK
     Route: 065
  69. DAFLON                             /00426001/ [Concomitant]
     Active Substance: DIOSMIN
     Dosage: UNK
     Route: 065
  70. SPIRIVA [Concomitant]
     Active Substance: TIOTROPIUM BROMIDE MONOHYDRATE
     Dosage: UNK
     Route: 065
  71. CAUMADIN [Concomitant]
     Active Substance: WARFARIN SODIUM
     Indication: PRODUCT USED FOR UNKNOWN INDICATION
     Dosage: UNK
     Route: 065
  72. PROSPAN                            /01017805/ [Concomitant]
     Dosage: UNK
     Route: 065

REACTIONS (50)
  - Bronchitis [Unknown]
  - Nasopharyngitis [Recovered/Resolved]
  - Diarrhoea [Unknown]
  - Red blood cell count increased [Unknown]
  - Mitral valve incompetence [Unknown]
  - Lymphocyte count decreased [Unknown]
  - Scoliosis [Unknown]
  - Gallbladder enlargement [Unknown]
  - Cardiac failure [Unknown]
  - Dysuria [Unknown]
  - Pyrexia [Unknown]
  - Haemoglobin decreased [Unknown]
  - Nasopharyngitis [Recovered/Resolved]
  - Urethral prolapse [Unknown]
  - General physical health deterioration [Recovered/Resolved]
  - Fatigue [Unknown]
  - Ventricular arrhythmia [Unknown]
  - Abdominal pain upper [Unknown]
  - Hepatomegaly [Unknown]
  - Neuropathy peripheral [Unknown]
  - Productive cough [Recovered/Resolved]
  - Respiratory distress [Unknown]
  - Blood creatinine increased [Unknown]
  - Dizziness [Unknown]
  - Renal cyst [Unknown]
  - Polyneuropathy [Unknown]
  - Dysaesthesia [Unknown]
  - Pleural effusion [Unknown]
  - Platelet count increased [Unknown]
  - Urinary retention [Unknown]
  - Aortic arteriosclerosis [Unknown]
  - Blood urea increased [Unknown]
  - Asthenia [Unknown]
  - Hypotension [Unknown]
  - Paraesthesia [Unknown]
  - Cholecystitis [Unknown]
  - Urinary tract infection [Unknown]
  - Ascites [Unknown]
  - Blood potassium increased [Unknown]
  - Arthralgia [Unknown]
  - Death [Fatal]
  - Gastrointestinal haemorrhage [Recovered/Resolved]
  - Pain [Unknown]
  - Thrombocytosis [Recovering/Resolving]
  - Visual impairment [Unknown]
  - Faeces discoloured [Unknown]
  - Cough [Unknown]
  - Epistaxis [Recovered/Resolved]
  - Glomerular filtration rate decreased [Unknown]
  - Faeces soft [Unknown]

NARRATIVE: CASE EVENT DATE: 20130626
